FAERS Safety Report 6301346-2 (Version None)
Quarter: 2009Q3

REPORT INFORMATION
  Report Type: 
  Country: None (occurrence: None)
  Receive Date: 20090807
  Receipt Date: 20090731
  Transmission Date: 20100115
  Serious: Yes (Hospitalization, Other)
  Sender: FDA-Public Use
  Company Number: FR-PFIZER INC-2009190631

PATIENT
  Age: 68 Year

DRUGS (4)
  1. TAHOR [Suspect]
     Indication: PROPHYLAXIS
     Dosage: 20 MG, 1X/DAY
  2. PLAVIX [Suspect]
     Indication: CORONARY ARTERY INSUFFICIENCY
     Dosage: 75 MG, 1X/DAY
     Route: 048
     Dates: end: 20090302
  3. ISOPTIN [Concomitant]
     Dosage: 240 MG, 1X/DAY
  4. LANZOR [Concomitant]
     Dosage: 15 MG, 2X/DAY

REACTIONS (5)
  - ARTHRALGIA [None]
  - ASTHENIA [None]
  - PLEURISY [None]
  - SYNOVIAL CYST [None]
  - SYSTEMIC INFLAMMATORY RESPONSE SYNDROME [None]
